FAERS Safety Report 4792409-1 (Version None)
Quarter: 2005Q4

REPORT INFORMATION
  Report Type: 
  Country: None (occurrence: None)
  Receive Date: 20051010
  Receipt Date: 20050622
  Transmission Date: 20060501
  Serious: Yes (Death, Other)
  Sender: FDA-Public Use
  Company Number: PHBS2005BE09007

PATIENT
  Age: 70 Year
  Sex: Male
  Weight: 77 kg

DRUGS (4)
  1. SANDOSTATIN [Concomitant]
     Route: 065
     Dates: start: 20011018
  2. INTRON A [Concomitant]
     Route: 065
     Dates: start: 20011018
  3. ZOMETA [Suspect]
     Indication: METASTASES TO BONE
     Dosage: 4 MG, QMO
     Route: 042
     Dates: start: 20021210, end: 20041210
  4. AREDIA [Suspect]
     Indication: METASTASES TO BONE
     Dosage: UNK, QMO
     Dates: start: 19990101, end: 20020419

REACTIONS (11)
  - BONE DISORDER [None]
  - DEATH [None]
  - FISTULA [None]
  - HYPERBARIC OXYGEN THERAPY [None]
  - OSTECTOMY [None]
  - OSTEOLYSIS [None]
  - OSTEOMYELITIS [None]
  - OSTEONECROSIS [None]
  - TOOTH EXTRACTION [None]
  - WOUND DEBRIDEMENT [None]
  - WOUND DEHISCENCE [None]
